FAERS Safety Report 22142355 (Version 2)
Quarter: 2023Q2

REPORT INFORMATION
  Report Type: Spontaneous
  Country: US (occurrence: US)
  Receive Date: 20230327
  Receipt Date: 20230405
  Transmission Date: 20230722
  Serious: Yes (Hospitalization)
  Sender: FDA-Public Use
  Company Number: US-BIOVITRUM-2023-US-007412

PATIENT
  Age: 9 Year
  Sex: Male

DRUGS (1)
  1. KINERET [Suspect]
     Active Substance: ANAKINRA
     Indication: Pyrexia
     Dosage: FREQUENCY: DAILY
     Route: 065
     Dates: start: 20220824

REACTIONS (9)
  - Back pain [Unknown]
  - Headache [Unknown]
  - Vomiting [Unknown]
  - Off label use [Unknown]
  - COVID-19 [Unknown]
  - Influenza [Unknown]
  - Product dose omission issue [Unknown]
  - Pyrexia [Unknown]
  - Gait inability [Unknown]

NARRATIVE: CASE EVENT DATE: 20220824
